FAERS Safety Report 6855629-8 (Version None)
Quarter: 2010Q3

REPORT INFORMATION
  Report Type: 
  Country: None (occurrence: None)
  Receive Date: 20100719
  Receipt Date: 20100709
  Transmission Date: 20110219
  Serious: Yes (Hospitalization, Other)
  Sender: FDA-Public Use
  Company Number: IT-JNJFOC-20100505695

PATIENT
  Sex: Female

DRUGS (5)
  1. TOPAMAX [Suspect]
     Indication: DEPRESSION
     Route: 048
  2. TOPAMAX [Suspect]
     Route: 048
  3. DEPAKENE [Suspect]
     Indication: DEPRESSION
     Route: 048
  4. XERISTAR [Suspect]
     Indication: DEPRESSION
     Route: 048
  5. LEXOTAN [Suspect]
     Indication: DEPRESSION
     Route: 048

REACTIONS (6)
  - ALCOHOL ABUSE [None]
  - CONFUSIONAL STATE [None]
  - DRUG ABUSE [None]
  - LETHARGY [None]
  - MULTIPLE DRUG OVERDOSE INTENTIONAL [None]
  - SELF INJURIOUS BEHAVIOUR [None]
